FAERS Safety Report 14152328 (Version 3)
Quarter: 2017Q4

REPORT INFORMATION
  Report Type: Report from Study
  Country: PA (occurrence: PA)
  Receive Date: 20171102
  Receipt Date: 20171129
  Transmission Date: 20180321
  Serious: Yes (Other)
  Sender: FDA-Public Use
  Company Number: PHHY2017PA082988

PATIENT
  Age: 65 Year
  Sex: Male

DRUGS (1)
  1. AFINITOR [Suspect]
     Active Substance: EVEROLIMUS
     Indication: RENAL CANCER
     Dosage: 10 MG, UNK
     Route: 065
     Dates: end: 201708

REACTIONS (15)
  - General physical health deterioration [Unknown]
  - Gait disturbance [Unknown]
  - Weight decreased [Unknown]
  - Loss of consciousness [Unknown]
  - Metastases to central nervous system [Unknown]
  - Eating disorder [Unknown]
  - Pain in extremity [Recovered/Resolved]
  - Choking [Unknown]
  - Pyrexia [Unknown]
  - Arthralgia [Recovered/Resolved]
  - Nervous system disorder [Unknown]
  - Cerebral disorder [Unknown]
  - Single functional kidney [Unknown]
  - Malaise [Unknown]
  - Speech disorder [Unknown]
